FAERS Safety Report 8472190-5 (Version None)
Quarter: 2012Q2

REPORT INFORMATION
  Report Type: 
  Country: None (occurrence: None)
  Receive Date: 20120627
  Receipt Date: 20120621
  Transmission Date: 20120825
  Serious: Yes (Hospitalization, Disabling)
  Sender: FDA-Public Use
  Company Number: US-MERCK-1103USA01557

PATIENT
  Age: 75 Year
  Sex: Female
  Weight: 84 kg

DRUGS (3)
  1. ALENDRONATE SODIUM [Suspect]
     Indication: OSTEOPOROSIS
     Route: 048
     Dates: start: 20080101
  2. FOSAMAX [Suspect]
     Route: 048
     Dates: start: 20010101, end: 20090101
  3. FOSAMAX [Suspect]
     Indication: OSTEOPOROSIS
     Route: 048
     Dates: start: 20010101, end: 20090101

REACTIONS (34)
  - FALL [None]
  - HERPES ZOSTER [None]
  - HYPERCHOLESTEROLAEMIA [None]
  - HERPES ZOSTER INFECTION NEUROLOGICAL [None]
  - ARTERIOSCLEROSIS CORONARY ARTERY [None]
  - ASTHMA [None]
  - NASAL DRYNESS [None]
  - METABOLIC SYNDROME [None]
  - SJOGREN'S SYNDROME [None]
  - SLEEP APNOEA SYNDROME [None]
  - MUSCULAR WEAKNESS [None]
  - EMPHYSEMA [None]
  - HYPOAESTHESIA [None]
  - NOCTURIA [None]
  - LEFT VENTRICULAR DYSFUNCTION [None]
  - BONE DENSITY DECREASED [None]
  - RESPIRATORY FAILURE [None]
  - FRACTURE NONUNION [None]
  - SPINAL CLAUDICATION [None]
  - SCAPULA FRACTURE [None]
  - ROTATOR CUFF SYNDROME [None]
  - RHINITIS [None]
  - HYPERTENSION [None]
  - OSTEOARTHRITIS [None]
  - LUMBAR SPINAL STENOSIS [None]
  - GASTROOESOPHAGEAL REFLUX DISEASE [None]
  - SPINAL COMPRESSION FRACTURE [None]
  - RIB FRACTURE [None]
  - PAIN IN EXTREMITY [None]
  - CHRONIC OBSTRUCTIVE PULMONARY DISEASE [None]
  - FEMUR FRACTURE [None]
  - BLOOD DISORDER [None]
  - RENAL FAILURE [None]
  - CATARACT [None]
